FAERS Safety Report 10056286 (Version 2)
Quarter: 2014Q2

REPORT INFORMATION
  Report Type: Spontaneous
  Country: US (occurrence: None)
  Receive Date: 20140401
  Receipt Date: 20140501
  Transmission Date: 20141212
  Serious: Yes (Hospitalization, Other)
  Sender: FDA-Public Use
  Company Number: 2262601

PATIENT
  Age: 68 Year
  Sex: Female

DRUGS (7)
  1. GEMCITABINE FOR INJECTION, USP (GEMCITABINE HYDROCHLORIDE) [Suspect]
     Indication: METASTATIC CARCINOMA OF THE BLADDER
     Route: 041
     Dates: start: 20140122, end: 20140219
  2. CISPLATIN [Suspect]
     Indication: METASTATIC CARCINOMA OF THE BLADDER
     Route: 041
     Dates: start: 20140122, end: 20140219
  3. PARACETAMOL [Concomitant]
  4. OXYCODONE [Concomitant]
  5. GRANISETRON [Concomitant]
  6. ONDANSETRON [Concomitant]
  7. RED BLOOD CELLS [Concomitant]

REACTIONS (5)
  - Pulmonary embolism [None]
  - Urinary tract infection [None]
  - Anaemia [None]
  - Haematuria [None]
  - Deep vein thrombosis [None]
